FAERS Safety Report 5763677-4 (Version None)
Quarter: 2008Q2

REPORT INFORMATION
  Report Type: 
  Country: None (occurrence: None)
  Receive Date: 20080610
  Receipt Date: 20080208
  Transmission Date: 20081010
  Serious: No
  Sender: FDA-Public Use
  Company Number: US-BAYER-200813922NA

PATIENT
  Age: 31 Year
  Sex: Female
  Weight: 59 kg

DRUGS (3)
  1. MIRENA [Suspect]
     Indication: CONTRACEPTION
     Route: 015
     Dates: start: 20070831
  2. FLONASE [Concomitant]
     Indication: MULTIPLE ALLERGIES
     Dates: start: 19990101
  3. SOLDANE [Concomitant]
     Indication: MULTIPLE ALLERGIES
     Dates: start: 19930101, end: 19990101

REACTIONS (1)
  - ALOPECIA [None]
